FAERS Safety Report 8991896 (Version 1)
Quarter: 2012Q4

REPORT INFORMATION
  Report Type: 
  Country: US (occurrence: US)
  Receive Date: 20121231
  Receipt Date: 20121231
  Transmission Date: 20130627
  Serious: Yes (Death)
  Sender: FDA-Public Use
  Company Number: US-ROCHE-1075559

PATIENT
  Sex: Male

DRUGS (1)
  1. XELODA [Suspect]
     Indication: PANCREATIC CARCINOMA
     Route: 065
     Dates: start: 20120528

REACTIONS (3)
  - Neoplasm malignant [Fatal]
  - Vomiting [Unknown]
  - Diarrhoea [Unknown]
